FAERS Safety Report 4790469-5 (Version None)
Quarter: 2005Q4

REPORT INFORMATION
  Report Type: 
  Country: None (occurrence: None)
  Receive Date: 20051005
  Receipt Date: 20050921
  Transmission Date: 20060501
  Serious: Yes (Other)
  Sender: FDA-Public Use
  Company Number: USA0509108802

PATIENT
  Age: 81 Year
  Sex: Female

DRUGS (1)
  1. HUMULIN 70/30 [Suspect]

REACTIONS (3)
  - BLOOD GLUCOSE INCREASED [None]
  - LUNG NEOPLASM MALIGNANT [None]
  - PHARMACEUTICAL PRODUCT COMPLAINT [None]
